FAERS Safety Report 8983223 (Version 2)
Quarter: 2013Q1

REPORT INFORMATION
  Report Type: Spontaneous
  Country: FI (occurrence: FI)
  Receive Date: 20121224
  Receipt Date: 20130215
  Transmission Date: 20140127
  Serious: Yes (Other)
  Sender: FDA-Public Use
  Company Number: PHHY2012FI117602

PATIENT
  Age: 53 Year
  Sex: Male

DRUGS (3)
  1. TASIGNA [Suspect]
     Indication: CHRONIC MYELOID LEUKAEMIA
     Dosage: 300 MG, UNK
     Dates: start: 20120820, end: 20120823
  2. TASIGNA [Suspect]
     Dates: start: 20121001, end: 20121204
  3. SEROQUEL [Concomitant]

REACTIONS (2)
  - Myocardial infarction [Unknown]
  - Electrocardiogram QT prolonged [Unknown]
